FAERS Safety Report 21358817 (Version 1)
Quarter: 2022Q3

REPORT INFORMATION
  Report Type: Spontaneous
  Country: US (occurrence: None)
  Receive Date: 20220920
  Receipt Date: 20220920
  Transmission Date: 20221027
  Serious: No
  Sender: FDA-Public Use
  Company Number: None

PATIENT
  Age: 83 Year
  Sex: Female
  Weight: 77.2 kg

DRUGS (17)
  1. IMATINIB [Suspect]
     Active Substance: IMATINIB
     Indication: Chronic myeloid leukaemia
     Dosage: FREQUENCY : DAILY;?
     Route: 048
  2. ALLOPURINOL [Concomitant]
     Active Substance: ALLOPURINOL
  3. ASPIRIN [Concomitant]
     Active Substance: ASPIRIN
  4. ATORVASTATIN [Suspect]
     Active Substance: ATORVASTATIN
  5. CARAFATE [Concomitant]
     Active Substance: SUCRALFATE
  6. CITALOPRAM [Concomitant]
     Active Substance: CITALOPRAM HYDROBROMIDE
  7. FUROSEMIDE [Concomitant]
     Active Substance: FUROSEMIDE
  8. JANUVIA [Concomitant]
     Active Substance: SITAGLIPTIN PHOSPHATE
  9. LOSARTAN [Concomitant]
     Active Substance: LOSARTAN
  10. MIRTAZAPINE [Concomitant]
     Active Substance: MIRTAZAPINE
  11. VITAMINS [Concomitant]
     Active Substance: VITAMINS
  12. NITROGLYCERIN [Concomitant]
     Active Substance: NITROGLYCERIN
  13. ONDANSETRON [Concomitant]
     Active Substance: ONDANSETRON
  14. PANTOPRAZOLE [Concomitant]
     Active Substance: PANTOPRAZOLE
  15. SUCRALFATE [Concomitant]
     Active Substance: SUCRALFATE
  16. TRESIBA [Concomitant]
     Active Substance: INSULIN DEGLUDEC
  17. VITAMIN C [Concomitant]
     Active Substance: ASCORBIC ACID

REACTIONS (1)
  - Disease progression [None]
